FAERS Safety Report 25623720 (Version 1)
Quarter: 2025Q3

REPORT INFORMATION
  Report Type: Spontaneous
  Country: US (occurrence: US)
  Receive Date: 20250730
  Receipt Date: 20250730
  Transmission Date: 20251021
  Serious: No
  Sender: CALLIDITAS THERAPEUTICS AB
  Company Number: US-Calliditas-2025CAL02184

PATIENT
  Age: 36 Year
  Sex: Female

DRUGS (15)
  1. TARPEYO [Suspect]
     Active Substance: BUDESONIDE
     Indication: IgA nephropathy
     Route: 048
  2. ACETAMINOPHEN [Concomitant]
     Active Substance: ACETAMINOPHEN
  3. CLONIDINE [Concomitant]
     Active Substance: CLONIDINE
  4. COREG [Concomitant]
     Active Substance: CARVEDILOL
  5. FERROUS SULFATE [Concomitant]
     Active Substance: FERROUS SULFATE
  6. HYDRALAZINE [Concomitant]
     Active Substance: HYDRALAZINE HYDROCHLORIDE
  7. ISOSORBIDE MONONITRATE [Concomitant]
     Active Substance: ISOSORBIDE MONONITRATE
  8. LIPITOR [Concomitant]
     Active Substance: ATORVASTATIN CALCIUM
  9. LOPRESSOR [Concomitant]
     Active Substance: METOPROLOL TARTRATE
  10. LOSARTAN [Concomitant]
     Active Substance: LOSARTAN
  11. MINOXIDIL [Concomitant]
     Active Substance: MINOXIDIL
  12. NIFEDIPINE [Concomitant]
     Active Substance: NIFEDIPINE
  13. NORETHINDRONE [Concomitant]
     Active Substance: NORETHINDRONE
  14. WELLBUTRIN SR [Concomitant]
     Active Substance: BUPROPION HYDROCHLORIDE
  15. ZADITOR [Concomitant]
     Active Substance: KETOTIFEN FUMARATE

REACTIONS (1)
  - Urinary tract infection [Not Recovered/Not Resolved]
